FAERS Safety Report 4354241-2 (Version None)
Quarter: 2004Q2

REPORT INFORMATION
  Report Type: 
  Country: None (occurrence: None)
  Receive Date: 20040506
  Receipt Date: 20040209
  Transmission Date: 20050107
  Serious: Yes (Hospitalization)
  Sender: FDA-Public Use
  Company Number: DE-GLAXOSMITHKLINE-D0043133A

PATIENT
  Sex: Male
  Weight: 79 kg

DRUGS (3)
  1. AVANDIA [Suspect]
     Route: 048
     Dates: start: 20031001, end: 20040101
  2. METFORMIN HCL [Concomitant]
     Route: 065
  3. CAPTOHEXAL [Concomitant]
     Route: 065

REACTIONS (2)
  - JAUNDICE [None]
  - NEOPLASM GROWTH ACCELERATED [None]
